FAERS Safety Report 7338738-9 (Version None)
Quarter: 2011Q1

REPORT INFORMATION
  Report Type: 
  Country: None (occurrence: None)
  Receive Date: 20110308
  Receipt Date: 20110307
  Transmission Date: 20110831
  Serious: Yes (Hospitalization)
  Sender: FDA-Public Use
  Company Number: B0704224A

PATIENT
  Sex: Male

DRUGS (10)
  1. SUFENTA PRESERVATIVE FREE [Concomitant]
     Route: 065
     Dates: start: 20110129, end: 20110129
  2. TRACRIUM [Concomitant]
     Route: 065
     Dates: start: 20110129, end: 20110129
  3. ETIDRONATE DISODIUM [Concomitant]
     Route: 065
     Dates: start: 20110129, end: 20110129
  4. EPHEDRINE [Concomitant]
     Route: 065
     Dates: start: 20110129, end: 20110129
  5. SUCCINYLCHOLINE CHLORIDE [Concomitant]
     Route: 065
     Dates: start: 20110129, end: 20110129
  6. AUGMENTIN (ORAL) [Suspect]
     Dosage: 1G TWICE PER DAY
     Route: 048
     Dates: start: 20110202, end: 20110207
  7. SERESTA [Concomitant]
     Route: 065
  8. AUGMENTIN IV [Suspect]
     Indication: PROPHYLAXIS
     Dosage: 2G PER DAY
     Route: 042
     Dates: start: 20110129, end: 20110129
  9. PROPOFOL [Concomitant]
     Route: 065
     Dates: start: 20110129, end: 20110129
  10. STAGID [Concomitant]
     Route: 065

REACTIONS (5)
  - ERYTHEMA [None]
  - PYREXIA [None]
  - LEUKOCYTOSIS [None]
  - ACUTE GENERALISED EXANTHEMATOUS PUSTULOSIS [None]
  - EOSINOPHILIA [None]
